FAERS Safety Report 17194946 (Version 1)
Quarter: 2019Q4

REPORT INFORMATION
  Report Type: Spontaneous
  Country: DE (occurrence: DE)
  Receive Date: 20191224
  Receipt Date: 20191224
  Transmission Date: 20200122
  Serious: Yes (Hospitalization)
  Sender: FDA-Public Use
  Company Number: DE-TEVA-2019-DE-1155585

PATIENT
  Age: 74 Year
  Sex: Male
  Weight: 83 kg

DRUGS (8)
  1. FLUOROURACIL. [Suspect]
     Active Substance: FLUOROURACIL
     Dosage: NK MG / KG / KG, ACCORDING TO THE SCHEME, MOST RECENTLY ON JUNE 28, 2018,
     Route: 042
  2. ATORVASTATIN [Concomitant]
     Active Substance: ATORVASTATIN
     Dosage: 20 MG, 0-0-1-0
     Route: 048
  3. CALCIMAGON D3 [Concomitant]
     Active Substance: CALCIUM\CHOLECALCIFEROL
     Dosage: NK MG, 1-0-0-0,
     Route: 048
  4. CISPLATIN. [Suspect]
     Active Substance: CISPLATIN
     Dosage: NK MG / KG / KG, ACCORDING TO THE SCHEME, MOST RECENTLY ON JUNE 28, 2018,
     Route: 042
  5. CALCIUMFOLINAT [Suspect]
     Active Substance: LEUCOVORIN CALCIUM
     Dosage: NK MG / KG / KG, ACCORDING TO THE SCHEME, MOST RECENTLY ON JUNE 28, 2018
     Route: 042
  6. LOPERAMID [Concomitant]
     Active Substance: LOPERAMIDE
     Dosage: 2 MG, NEED
     Route: 048
  7. ONDANSETRON [Concomitant]
     Active Substance: ONDANSETRON
     Dosage: 8 MG, 1-0-1-0, NEED,
     Route: 048
  8. DEXAMETHASON [Concomitant]
     Active Substance: DEXAMETHASONE
     Dosage: 8 MG, 1-0-0-0, ONLY DAY 1-2 AFTER THERAPY,
     Route: 048

REACTIONS (3)
  - Chills [Unknown]
  - Cough [Unknown]
  - Pyrexia [Unknown]
